FAERS Safety Report 9116875 (Version 1)
Quarter: 2013Q1

REPORT INFORMATION
  Report Type: Spontaneous
  Country: IN (occurrence: IN)
  Receive Date: 20130225
  Receipt Date: 20130225
  Transmission Date: 20140127
  Serious: Yes (Congenital Anomaly)
  Sender: FDA-Public Use
  Company Number: PHHY2013IN017801

PATIENT
  Sex: 0

DRUGS (1)
  1. GLIVEC [Suspect]
     Dosage: 800 MG, QD (MATERNAL DOSE)
     Route: 064

REACTIONS (2)
  - Congenital anomaly in offspring [Unknown]
  - Foetal exposure during pregnancy [Unknown]
